FAERS Safety Report 8410246-3 (Version None)
Quarter: 2012Q2

REPORT INFORMATION
  Report Type: 
  Country: None (occurrence: None)
  Receive Date: 20120529
  Receipt Date: 20050908
  Transmission Date: 20120825
  Serious: Yes (Hospitalization)
  Sender: FDA-Public Use
  Company Number: 15691-USA-05-2147

PATIENT
  Age: 44 Year
  Sex: Male

DRUGS (14)
  1. AVAPRO [Concomitant]
  2. METOLAZONE [Concomitant]
  3. ALDACTONE [Concomitant]
  4. DIGOXIN [Concomitant]
  5. PREVACID [Concomitant]
  6. COREG [Concomitant]
  7. ASPIRIN [Concomitant]
  8. CAPTOPRIL [Concomitant]
  9. DARVOCET-N (PARACETAMOL, DEXTROPROPOXYPHENE NAPSILATE) [Concomitant]
  10. TOLVAPTAN (TOLVAPTAN(V4.1)) 30MG [Suspect]
     Indication: CARDIAC FAILURE CONGESTIVE
     Dosage: 30 MG, QD, ORAL
     Route: 048
     Dates: start: 20040211, end: 20050822
  11. NEURONTIN [Concomitant]
  12. LASIX [Concomitant]
  13. HUMALOG [Concomitant]
  14. LANTUS [Concomitant]

REACTIONS (8)
  - HYPONATRAEMIA [None]
  - OEDEMA [None]
  - CONDITION AGGRAVATED [None]
  - CARDIAC FAILURE CONGESTIVE [None]
  - BLOOD CREATININE INCREASED [None]
  - ABDOMINAL DISTENSION [None]
  - BLOOD POTASSIUM DECREASED [None]
  - HEPATOMEGALY [None]
